FAERS Safety Report 11697487 (Version 2)
Quarter: 2015Q4

REPORT INFORMATION
  Report Type: Spontaneous
  Country: US (occurrence: US)
  Receive Date: 20151104
  Receipt Date: 20151109
  Transmission Date: 20160304
  Serious: No
  Sender: FDA-Public Use
  Company Number: US-PFIZER INC-2015353275

PATIENT
  Age: 35 Year
  Sex: Male
  Weight: 91 kg

DRUGS (1)
  1. ADVIL COLD AND SINUS [Suspect]
     Active Substance: IBUPROFEN\PSEUDOEPHEDRINE HYDROCHLORIDE
     Indication: NASOPHARYNGITIS
     Dosage: 1 DF, 2X/DAY
     Dates: end: 201510

REACTIONS (3)
  - Urticaria [Recovered/Resolved]
  - Hypersensitivity [Unknown]
  - Product quality issue [Unknown]
